FAERS Safety Report 6052023-7 (Version None)
Quarter: 2009Q1

REPORT INFORMATION
  Report Type: 
  Country: None (occurrence: None)
  Receive Date: 20090121
  Receipt Date: 20080313
  Transmission Date: 20090719
  Serious: Yes (Other)
  Sender: FDA-Public Use
  Company Number: HQWYE209917JUL04

PATIENT
  Age: 48 Year
  Sex: Female
  Weight: 106.69 kg

DRUGS (1)
  1. CONJUGATED ESTROGEN [Suspect]
     Indication: HORMONE REPLACEMENT THERAPY
     Dosage: ORAL
     Route: 048
     Dates: start: 19980921, end: 19990508

REACTIONS (1)
  - BREAST CANCER [None]
